FAERS Safety Report 9059637 (Version 1)
Quarter: 2013Q1

REPORT INFORMATION
  Report Type: Spontaneous
  Country: US (occurrence: None)
  Receive Date: 20130205
  Receipt Date: 20130205
  Transmission Date: 20140127
  Serious: Yes (Other)
  Sender: FDA-Public Use
  Company Number: None

PATIENT
  Age: 17 Year
  Sex: Female
  Weight: 45.36 kg

DRUGS (2)
  1. PROPARACAINE HYDROCHLORIDE [Suspect]
     Indication: ANAESTHESIA PROCEDURE
     Route: 047
     Dates: start: 20130129, end: 20130129
  2. PROPARACAINE HYDROCHLORIDE [Suspect]
     Indication: OPHTHALMOLOGICAL EXAMINATION
     Route: 047
     Dates: start: 20130129, end: 20130129

REACTIONS (7)
  - Nausea [None]
  - Dizziness [None]
  - Loss of consciousness [None]
  - Paralysis [None]
  - Presyncope [None]
  - Photophobia [None]
  - Headache [None]
